FAERS Safety Report 7320155-9 (Version None)
Quarter: 2011Q1

REPORT INFORMATION
  Report Type: 
  Country: None (occurrence: None)
  Receive Date: 20110228
  Receipt Date: 20110222
  Transmission Date: 20110831
  Serious: Yes (Hospitalization)
  Sender: FDA-Public Use
  Company Number: JP-EISAI INC-E2020-08640-SPO-JP

PATIENT
  Age: 70 Year
  Sex: Female

DRUGS (7)
  1. MINOMYCIN [Concomitant]
     Indication: PNEUMONIA
     Dates: start: 20110122
  2. ARICEPT [Suspect]
     Route: 048
     Dates: end: 20110209
  3. MUCOSOLVAN [Concomitant]
     Route: 048
     Dates: end: 20110209
  4. FLUMARIN [Concomitant]
     Indication: BODY TEMPERATURE
     Dates: start: 20110207
  5. VESICARE [Concomitant]
     Indication: DYSURIA
     Route: 048
     Dates: end: 20110209
  6. DIGILANOGEN C [Concomitant]
     Indication: TACHYCARDIA
     Dates: start: 20110209
  7. LASIX [Concomitant]
     Indication: TACHYCARDIA
     Dates: start: 20110209

REACTIONS (1)
  - INTERSTITIAL LUNG DISEASE [None]
